FAERS Safety Report 8255244-8 (Version None)
Quarter: 2012Q1

REPORT INFORMATION
  Report Type: 
  Country: None (occurrence: None)
  Receive Date: 20120330
  Receipt Date: 20120318
  Transmission Date: 20120608
  Serious: Yes (Hospitalization)
  Sender: FDA-Public Use
  Company Number: 2012-1374

PATIENT
  Age: 77 Year
  Sex: Male

DRUGS (1)
  1. SOMATULINE DEPOT [Suspect]
     Indication: ACROMEGALY
     Dosage: NOT REPORTED (NOT REPORTED, NOT REPORTED), UNKNOWN

REACTIONS (1)
  - ATRIAL FIBRILLATION [None]
